FAERS Safety Report 9999323 (Version 2)
Quarter: 2014Q2

REPORT INFORMATION
  Report Type: Spontaneous
  Country: IT (occurrence: IT)
  Receive Date: 20140312
  Receipt Date: 20140530
  Transmission Date: 20141212
  Serious: Yes (Life-Threatening)
  Sender: FDA-Public Use
  Company Number: IT-MYLANLABS-2014S1004710

PATIENT
  Age: 65 Year
  Sex: Male
  Weight: 65 kg

DRUGS (7)
  1. LEVOFLOXACIN [Suspect]
     Indication: BRONCHITIS
     Dosage: 500 MG DAILY
     Route: 048
     Dates: start: 20140119, end: 20140121
  2. THEO-DUR [Interacting]
     Indication: CHRONIC OBSTRUCTIVE PULMONARY DISEASE
     Dosage: 2 DF DAILY
     Route: 048
  3. KEPPRA [Concomitant]
     Indication: CONVULSION
     Dosage: 500 MG 2 DF
     Route: 048
     Dates: start: 20120501, end: 20140122
  4. TRITTICO [Concomitant]
     Indication: PRODUCT USED FOR UNKNOWN INDICATION
     Dosage: 75 MG 1 DF
     Route: 048
  5. SERETIDE 500 DISKUS 50 MICROGRAM/500 MICROGRAM/DOSE [Concomitant]
     Indication: CHRONIC OBSTRUCTIVE PULMONARY DISEASE
     Dosage: 50/500
  6. VERTISERC [Concomitant]
     Indication: PRODUCT USED FOR UNKNOWN INDICATION
  7. VERAPAMIL [Concomitant]
     Indication: TACHYCARDIA
     Dosage: 120 MG
     Route: 048

REACTIONS (3)
  - Convulsion [Recovered/Resolved]
  - Drug interaction [Recovered/Resolved]
  - Drug prescribing error [Recovered/Resolved]
